FAERS Safety Report 5809997-6 (Version None)
Quarter: 2008Q3

REPORT INFORMATION
  Report Type: 
  Country: None (occurrence: None)
  Receive Date: 20080715
  Receipt Date: 20080708
  Transmission Date: 20090109
  Serious: Yes (Death, Hospitalization)
  Sender: FDA-Public Use
  Company Number: JP-BAYER-JP-SHR-03-011303

PATIENT
  Age: 44 Year
  Sex: Female
  Weight: 47 kg

DRUGS (11)
  1. FLUDARABINE PHOSPHATE [Suspect]
     Indication: NON-HODGKIN'S LYMPHOMA
     Dosage: TOTAL DAILY DOSE: 50 MG  UNIT DOSE: 50 MG
     Route: 048
     Dates: start: 20030522
  2. FLUDARABINE PHOSPHATE [Suspect]
     Dosage: TOTAL DAILY DOSE: 50 MG  UNIT DOSE: 50 MG
     Route: 048
     Dates: start: 20030624, end: 20030628
  3. FUNGIZONE [Concomitant]
     Indication: INFECTION PROPHYLAXIS
     Dosage: UNIT DOSE: 400 MG
     Route: 048
     Dates: start: 20030522, end: 20030522
  4. FUNGIZONE [Concomitant]
     Dosage: UNIT DOSE: 400 MG
     Route: 048
     Dates: start: 20030523, end: 20030728
  5. FUNGIZONE [Concomitant]
     Dosage: UNIT DOSE: 400 MG
     Route: 048
     Dates: start: 20030729, end: 20030729
  6. BAKTAR [Concomitant]
     Indication: PROPHYLAXIS
     Route: 048
     Dates: start: 20030531, end: 20030629
  7. BAKTAR [Concomitant]
     Route: 048
     Dates: start: 20030707, end: 20030708
  8. BAKTAR [Concomitant]
     Route: 048
     Dates: start: 20030714, end: 20030714
  9. BAKTAR [Concomitant]
     Route: 048
     Dates: start: 20030715, end: 20030715
  10. BAKTAR [Concomitant]
     Route: 048
     Dates: start: 20030716, end: 20030716
  11. ISODINE [Concomitant]
     Indication: INFECTION PROPHYLAXIS
     Route: 061
     Dates: start: 20030621, end: 20030715

REACTIONS (14)
  - ABDOMINAL DISCOMFORT [None]
  - ABDOMINAL TENDERNESS [None]
  - ACUTE MYELOID LEUKAEMIA [None]
  - BACK PAIN [None]
  - CYSTITIS [None]
  - DYSURIA [None]
  - ESCHERICHIA URINARY TRACT INFECTION [None]
  - HAEMATURIA [None]
  - NEUTROPHIL COUNT DECREASED [None]
  - POLLAKIURIA [None]
  - PYELONEPHRITIS [None]
  - PYREXIA [None]
  - RENAL ABSCESS [None]
  - WHITE BLOOD CELL COUNT DECREASED [None]
